FAERS Safety Report 12849221 (Version 2)
Quarter: 2016Q4

REPORT INFORMATION
  Report Type: Report from Study
  Country: BE (occurrence: BE)
  Receive Date: 20161014
  Receipt Date: 20161114
  Transmission Date: 20170207
  Serious: Yes (Hospitalization)
  Sender: FDA-Public Use
  Company Number: BE-B.I. PHARMACEUTICALS,INC./RIDGEFIELD-2016-BI-61870BI

PATIENT
  Age: 63 Year
  Sex: Female
  Weight: 62 kg

DRUGS (5)
  1. ATORVASTATINE [Concomitant]
     Active Substance: ATORVASTATIN
     Indication: HYPERCHOLESTEROLAEMIA
     Route: 048
     Dates: start: 20150818
  2. BLINDED DABIGATRAN [Suspect]
     Active Substance: DABIGATRAN ETEXILATE
     Indication: CEREBROVASCULAR ACCIDENT PROPHYLAXIS
     Route: 048
     Dates: start: 20160211
  3. PANTONEC [Concomitant]
     Indication: PROPHYLAXIS AGAINST GASTROINTESTINAL ULCER
     Route: 048
     Dates: start: 2012
  4. ASAFLOW [Concomitant]
     Active Substance: ASPIRIN
     Indication: CEREBROVASCULAR ACCIDENT PROPHYLAXIS
     Route: 048
     Dates: start: 20161102
  5. FRAXIPARINE [Concomitant]
     Active Substance: NADROPARIN CALCIUM
     Indication: CEREBROVASCULAR ACCIDENT PROPHYLAXIS
     Route: 058
     Dates: start: 20161024, end: 20161101

REACTIONS (1)
  - Invasive breast carcinoma [Not Recovered/Not Resolved]

NARRATIVE: CASE EVENT DATE: 20160701
